FAERS Safety Report 20053651 (Version 1)
Quarter: 2021Q4

REPORT INFORMATION
  Report Type: Spontaneous
  Country: US (occurrence: US)
  Receive Date: 20211110
  Receipt Date: 20211110
  Transmission Date: 20220303
  Serious: No
  Sender: FDA-Public Use
  Company Number: US-PFIZER INC-2021494334

PATIENT
  Age: 47 Year
  Sex: Male
  Weight: 158.8 kg

DRUGS (3)
  1. XELJANZ [Suspect]
     Active Substance: TOFACITINIB CITRATE
     Indication: Arthralgia
     Dosage: 5 MG, 2X/DAY (ONE TABLET IN MORNING AND ONE TABLET AT NIGHT)
     Route: 048
     Dates: start: 2019
  2. METHOTREXATE [Concomitant]
     Active Substance: METHOTREXATE
     Indication: Tendonitis
     Dosage: UNK
  3. METHOTREXATE [Concomitant]
     Active Substance: METHOTREXATE
     Indication: Rheumatoid arthritis

REACTIONS (6)
  - Drug ineffective [Unknown]
  - Joint swelling [Unknown]
  - Arthralgia [Unknown]
  - Pain [Unknown]
  - Arthritis [Unknown]
  - Peripheral swelling [Unknown]
